FAERS Safety Report 22139743 (Version 1)
Quarter: 2023Q1

REPORT INFORMATION
  Report Type: Other
  Country: FR (occurrence: FR)
  Receive Date: 20230327
  Receipt Date: 20230327
  Transmission Date: 20230417
  Serious: Yes (Death, Other)
  Sender: FDA-Public Use
  Company Number: FR-CELLTRION INC.-2023FR006106

PATIENT

DRUGS (9)
  1. TRASTUZUMAB [Suspect]
     Active Substance: TRASTUZUMAB
     Indication: Breast cancer female
     Dosage: UNK (FOR 1 YEAR)
  2. TAMOXIFEN CITRATE [Suspect]
     Active Substance: TAMOXIFEN CITRATE
     Indication: Breast cancer female
     Dosage: UNK
  3. DOCETAXEL [Suspect]
     Active Substance: DOCETAXEL
     Indication: Breast cancer female
     Dosage: UNK, CYCLIC (6 CYCLES)
  4. LAPATINIB [Suspect]
     Active Substance: LAPATINIB
     Indication: Breast cancer female
     Dosage: UNK (FOR 1 YEAR)
  5. CYCLOPHOSPHAMIDE [Suspect]
     Active Substance: CYCLOPHOSPHAMIDE
     Indication: Breast cancer female
     Dosage: UNK, CYCLIC (6 CYCLES)
  6. DAUNORUBICIN [Suspect]
     Active Substance: DAUNORUBICIN
     Indication: Acute myeloid leukaemia
     Dosage: UNK, CYCLIC CYCLIC (3+7)
  7. DOXORUBICIN HYDROCHLORIDE [Suspect]
     Active Substance: DOXORUBICIN HYDROCHLORIDE
     Indication: Breast cancer female
     Dosage: UNK, CYCLIC (6 CYCLES)
  8. CYTARABINE [Concomitant]
     Active Substance: CYTARABINE
     Indication: Acute myeloid leukaemia
     Dosage: 200 MG/M2, CYCLIC (200 MG/M2, CYCLIC (3+7))
  9. CYTARABINE [Concomitant]
     Active Substance: CYTARABINE
     Dosage: UNK (CYCLIC (HIGH?DOSE))

REACTIONS (4)
  - Second primary malignancy [Fatal]
  - Cardiac arrest [Fatal]
  - Cardiotoxicity [Fatal]
  - Acute myeloid leukaemia [Fatal]

NARRATIVE: CASE EVENT DATE: 20090901
